FAERS Safety Report 17062373 (Version 1)
Quarter: 2019Q4

REPORT INFORMATION
  Report Type: Spontaneous
  Country: US (occurrence: US)
  Receive Date: 20191122
  Receipt Date: 20191122
  Transmission Date: 20200122
  Serious: No
  Sender: FDA-Public Use
  Company Number: US-TEVA-2018-US-989121

PATIENT
  Age: 26 Year
  Sex: Female

DRUGS (7)
  1. MORPHINE [Suspect]
     Active Substance: MORPHINE
     Indication: PAIN IN EXTREMITY
     Dosage: RECEIVED ONLY A SINGLE DOSE
     Route: 065
  2. ONDANSETRON [Suspect]
     Active Substance: ONDANSETRON
     Route: 065
  3. NACL [Suspect]
     Active Substance: SODIUM CHLORIDE
     Dosage: LOADING DOSE, ADMINISTERED ALONG WITH CROTALIDAE POLYVALENT IMMUNE FAB (OVINE)
     Route: 065
  4. OXYTOCIN. [Suspect]
     Active Substance: OXYTOCIN
     Route: 042
  5. FENTANYL. [Suspect]
     Active Substance: FENTANYL
     Indication: PAIN IN EXTREMITY
     Route: 042
  6. NACL [Suspect]
     Active Substance: SODIUM CHLORIDE
     Dosage: THIS WAS FOLLOWED BY THREE MAINTENANCE DOSES OF SODIUM CHLORIDE CORRESPONDING TO THREE MAINTENANC...
     Route: 065
  7. NACL [Suspect]
     Active Substance: SODIUM CHLORIDE
     Dosage: SECOND DOSE, ADMINISTERED ALONG WITH CROTALIDAE POLYVALENT IMMUNE FAB (OVINE)
     Route: 065

REACTIONS (2)
  - Maternal exposure during pregnancy [Unknown]
  - Normal newborn [Unknown]
